FAERS Safety Report 6716395-X (Version None)
Quarter: 2010Q2

REPORT INFORMATION
  Report Type: 
  Country: None (occurrence: None)
  Receive Date: 20100507
  Receipt Date: 20100427
  Transmission Date: 20101027
  Serious: Yes (Other)
  Sender: FDA-Public Use
  Company Number: US-SANOFI-AVENTIS-2010SA011137

PATIENT
  Age: 63 Year
  Sex: Female
  Weight: 97.5 kg

DRUGS (11)
  1. LOVENOX [Suspect]
     Indication: ANTIPHOSPHOLIPID SYNDROME
     Route: 065
     Dates: start: 20100210
  2. COUMADIN [Suspect]
     Indication: ANTIPHOSPHOLIPID SYNDROME
     Route: 065
     Dates: end: 20100210
  3. THYROID TAB [Concomitant]
     Indication: HYPOTHYROIDISM
     Dosage: TAKES 2 1/2 DAILY
     Dates: start: 19860101
  4. PLAVIX [Concomitant]
     Indication: ANTIPHOSPHOLIPID SYNDROME
     Dosage: 1 EACH MORNING
     Dates: start: 19930101
  5. VITAMIN B-12 [Concomitant]
     Dosage: ONE PER WEEK
     Dates: start: 19930101
  6. LOVAZA [Concomitant]
     Dosage: 2 DAILY- 1 GM DOSE:1 UNIT(S)
     Dates: start: 20090101
  7. FOLIC ACID [Concomitant]
  8. CALCIUM [Concomitant]
  9. ALL OTHER THERAPEUTIC PRODUCTS [Concomitant]
  10. VITAMIN D [Concomitant]
  11. VITAMIN PREPARATION COMPOUND [Concomitant]
     Indication: VITAMIN B COMPLEX DEFICIENCY

REACTIONS (6)
  - AMNESIA [None]
  - CONDITION AGGRAVATED [None]
  - DIZZINESS [None]
  - HYPOAESTHESIA [None]
  - TRANSIENT ISCHAEMIC ATTACK [None]
  - VISUAL IMPAIRMENT [None]
